FAERS Safety Report 9496129 (Version 2)
Quarter: 2013Q3

REPORT INFORMATION
  Report Type: Report from Study
  Country: CA (occurrence: CA)
  Receive Date: 20130904
  Receipt Date: 20130904
  Transmission Date: 20140515
  Serious: Yes (Hospitalization)
  Sender: FDA-Public Use
  Company Number: CA-ROCHE-1262201

PATIENT
  Age: 62 Year
  Sex: Female
  Weight: 64.9 kg

DRUGS (12)
  1. TOCILIZUMAB [Suspect]
     Indication: RHEUMATOID ARTHRITIS
     Route: 065
     Dates: start: 20120730
  2. TOCILIZUMAB [Suspect]
     Route: 065
     Dates: start: 20120827
  3. TOCILIZUMAB [Suspect]
     Route: 065
     Dates: start: 20120924
  4. TOCILIZUMAB [Suspect]
     Route: 065
     Dates: start: 20121022
  5. TOCILIZUMAB [Suspect]
     Route: 065
     Dates: start: 20121119
  6. TOCILIZUMAB [Suspect]
     Route: 065
     Dates: start: 20121217
  7. TOCILIZUMAB [Suspect]
     Route: 065
     Dates: start: 20130114
  8. TOCILIZUMAB [Suspect]
     Route: 065
     Dates: start: 20130211
  9. TOCILIZUMAB [Suspect]
     Route: 065
     Dates: start: 20130311
  10. TOCILIZUMAB [Suspect]
     Route: 065
     Dates: start: 20130408
  11. TOCILIZUMAB [Suspect]
     Route: 065
     Dates: start: 20130506
  12. SECUKINUMAB [Suspect]
     Indication: RHEUMATOID ARTHRITIS
     Dosage: RECENT DOSE ON 08/JUL/2013
     Route: 042
     Dates: start: 20120730

REACTIONS (1)
  - Small intestinal obstruction [Recovered/Resolved]
